FAERS Safety Report 9800440 (Version 3)
Quarter: 2014Q1

REPORT INFORMATION
  Report Type: Spontaneous
  Country: US (occurrence: US)
  Receive Date: 20140107
  Receipt Date: 20140303
  Transmission Date: 20141002
  Serious: Yes (Life-Threatening, Hospitalization, Disabling, Other)
  Sender: FDA-Public Use
  Company Number: US-009507513-1401USA000181

PATIENT
  Age: 66 Year
  Sex: Female
  Weight: 101.59 kg

DRUGS (11)
  1. VICTRELIS [Suspect]
     Indication: HEPATITIS C
     Dosage: UNK
     Route: 048
     Dates: start: 20131219, end: 20131227
  2. PEGASYS [Suspect]
     Dosage: UNK
     Dates: start: 20131121, end: 201312
  3. REBETOL [Suspect]
     Dosage: UNK
     Route: 048
     Dates: start: 20131121, end: 201312
  4. PRINIVIL [Suspect]
     Dosage: UNK
     Route: 048
     Dates: start: 201310, end: 201312
  5. ALLOPURINOL [Concomitant]
     Dosage: 300 MG, QD
     Route: 048
  6. METFORMIN [Concomitant]
     Dosage: 500 MG, QD
     Route: 048
  7. TRAMADOL HYDROCHLORIDE [Concomitant]
     Dosage: UNK, PRN
     Route: 048
  8. MAGNESIUM OXIDE [Concomitant]
     Dosage: 400 MG, QD
     Route: 048
  9. KLOR-CON [Concomitant]
     Dosage: 10 MEQ, BID
  10. OMEPRAZOLE [Concomitant]
     Dosage: 10 MG, QD
     Route: 048
  11. METOPROLOL SUCCINATE [Concomitant]
     Dosage: 25 MG, BID

REACTIONS (4)
  - Anaphylactic reaction [Recovered/Resolved]
  - Thrombocytopenia [Unknown]
  - Leukopenia [Unknown]
  - Colonoscopy [Unknown]
